FAERS Safety Report 4686232-6 (Version None)
Quarter: 2005Q2

REPORT INFORMATION
  Report Type: 
  Country: None (occurrence: None)
  Receive Date: 20050609
  Receipt Date: 20050531
  Transmission Date: 20051028
  Serious: Yes (Other)
  Sender: FDA-Public Use
  Company Number: CA-GLAXOSMITHKLINE-A0561509A

PATIENT
  Sex: Female

DRUGS (2)
  1. PAXIL [Suspect]
     Indication: DRUG USE FOR UNKNOWN INDICATION
     Dosage: 60MG PER DAY
     Route: 048
  2. PAROXETINE HCL [Suspect]
     Indication: DRUG USE FOR UNKNOWN INDICATION
     Dosage: 60MG PER DAY
     Route: 048

REACTIONS (5)
  - CRYING [None]
  - DEPRESSION [None]
  - HYPOMANIA [None]
  - SUICIDAL IDEATION [None]
  - THINKING ABNORMAL [None]
